FAERS Safety Report 6409630-9 (Version None)
Quarter: 2009Q4

REPORT INFORMATION
  Report Type: 
  Country: None (occurrence: None)
  Receive Date: 20091022
  Receipt Date: 20091015
  Transmission Date: 20100525
  Serious: Yes (Death, Hospitalization, Other)
  Sender: FDA-Public Use
  Company Number: US-PFIZER INC-2009179906

PATIENT
  Sex: Male

DRUGS (1)
  1. CELEBREX [Suspect]
     Dosage: UNK
     Dates: start: 20040101

REACTIONS (3)
  - ARTHROPATHY [None]
  - DEATH [None]
  - PANCREATITIS NECROTISING [None]
